FAERS Safety Report 22385691 (Version 2)
Quarter: 2023Q2

REPORT INFORMATION
  Report Type: Spontaneous
  Country: US (occurrence: US)
  Receive Date: 20230530
  Receipt Date: 20230629
  Transmission Date: 20230722
  Serious: No
  Sender: FDA-Public Use
  Company Number: US-PFIZER INC-PV202300038658

PATIENT
  Age: 76 Year
  Sex: Male

DRUGS (4)
  1. BRAFTOVI [Suspect]
     Active Substance: ENCORAFENIB
     Indication: Colon cancer
     Dosage: 75 MG
     Dates: start: 20230123
  2. BRAFTOVI [Suspect]
     Active Substance: ENCORAFENIB
     Indication: Skin hypertrophy
     Dosage: 300 MG
  3. BRAFTOVI [Suspect]
     Active Substance: ENCORAFENIB
     Dosage: 75 MG
     Dates: start: 20230328
  4. BRAFTOVI [Suspect]
     Active Substance: ENCORAFENIB
     Dosage: 75 MG
     Dates: start: 20230515

REACTIONS (2)
  - Immune system disorder [Unknown]
  - Mood altered [Unknown]
